FAERS Safety Report 7328545-5 (Version None)
Quarter: 2011Q1

REPORT INFORMATION
  Report Type: 
  Country: None (occurrence: None)
  Receive Date: 20110224
  Receipt Date: 20110224
  Transmission Date: 20110831
  Serious: Yes (Other)
  Sender: FDA-Public Use
  Company Number: None

PATIENT
  Age: 65 Year
  Sex: Female
  Weight: 81.8 kg

DRUGS (2)
  1. OSMOPREP [Suspect]
     Indication: GASTROINTESTINAL DISORDER
     Dosage: OSMOPREP 4 AT 5PM TIMES 5 SEE ITEM 5 , OSMO PREP 4 AT 9PM TIMES 3 SEE ITME 5
     Dates: start: 20110221
  2. OSMOPREP [Suspect]
     Indication: GASTROINTESTINAL DISORDER
     Dosage: OSMOPREP 4 AT 5PM TIMES 5 SEE ITEM 5 , OSMO PREP 4 AT 9PM TIMES 3 SEE ITME 5
     Dates: start: 20110221

REACTIONS (1)
  - DRUG INEFFECTIVE [None]
